FAERS Safety Report 8903289 (Version 4)
Quarter: 2012Q4

REPORT INFORMATION
  Report Type: 
  Country: US (occurrence: US)
  Receive Date: 20121113
  Receipt Date: 20121123
  Transmission Date: 20130627
  Serious: Yes (Other)
  Sender: FDA-Public Use
  Company Number: US-PFIZER INC-2012281428

PATIENT
  Age: 70 Year
  Sex: Female
  Weight: 77.1 kg

DRUGS (4)
  1. PROTONIX [Suspect]
     Indication: HYPERCHLORHYDRIA
     Dosage: 40 mg, 1x/day
     Route: 048
     Dates: start: 2002
  2. PROTONIX [Suspect]
     Dosage: 40 mg, 1x/day
     Route: 048
     Dates: start: 2011
  3. NEXIUM [Suspect]
     Indication: HYPERCHLORHYDRIA
     Dosage: UNK
  4. PANTOPRAZOLE [Suspect]
     Indication: HYPERCHLORHYDRIA
     Dosage: UNK
     Dates: start: 2011, end: 2011

REACTIONS (3)
  - Nephrolithiasis [Recovered/Resolved]
  - Malaise [Unknown]
  - Pain [Unknown]
